FAERS Safety Report 8999218 (Version 1)
Quarter: 2013Q1

REPORT INFORMATION
  Report Type: Spontaneous
  Country: CH (occurrence: CH)
  Receive Date: 20130103
  Receipt Date: 20130103
  Transmission Date: 20140127
  Serious: Yes (Other)
  Sender: FDA-Public Use
  Company Number: PHHY2012CH121665

PATIENT
  Age: 55 Year
  Sex: Male
  Weight: 85 kg

DRUGS (1)
  1. SANDIMMUNE NEORAL [Suspect]

REACTIONS (3)
  - Suicidal ideation [Unknown]
  - Intentional overdose [Unknown]
  - Blood pressure increased [Unknown]
